FAERS Safety Report 18176292 (Version 1)
Quarter: 2020Q3

REPORT INFORMATION
  Report Type: Spontaneous
  Country: US (occurrence: US)
  Receive Date: 20200820
  Receipt Date: 20200820
  Transmission Date: 20201103
  Serious: Yes (Other)
  Sender: FDA-Public Use
  Company Number: US-MYLANLABS-2020M1072473

PATIENT
  Age: 42 Year
  Sex: Male

DRUGS (15)
  1. AMANTADINE. [Concomitant]
     Active Substance: AMANTADINE HYDROCHLORIDE
     Indication: PARKINSONISM
  2. CARBIDOPA/LEVODOPA [Suspect]
     Active Substance: CARBIDOPA\LEVODOPA
     Dosage: 20 TO 30 TABLETS FOR SUICIDE ATTEMPT
     Route: 048
  3. NEUPRO [Suspect]
     Active Substance: ROTIGOTINE
     Indication: OSMOTIC DEMYELINATION SYNDROME
     Dosage: 2 MILLIGRAM
     Route: 062
  4. LAMOTRIGINE. [Concomitant]
     Active Substance: LAMOTRIGINE
     Indication: COMPULSIVE SHOPPING
     Route: 065
  5. PRAMIPEXOLE. [Suspect]
     Active Substance: PRAMIPEXOLE
     Indication: OSMOTIC DEMYELINATION SYNDROME
     Dosage: 0.5 MILLIGRAM, THREE TIMES PER DAY
     Route: 065
  6. AMANTADINE. [Concomitant]
     Active Substance: AMANTADINE HYDROCHLORIDE
     Indication: OSMOTIC DEMYELINATION SYNDROME
     Dosage: 100 MILLIGRAM, BID
     Route: 065
  7. TRIHEXYPHENIDYL [Concomitant]
     Active Substance: TRIHEXYPHENIDYL
     Indication: OSMOTIC DEMYELINATION SYNDROME
     Dosage: 2 MILLIGRAM, THREE TIMES PER DAY
     Route: 065
  8. DESMOPRESSIN [Concomitant]
     Active Substance: DESMOPRESSIN
     Indication: VON WILLEBRAND^S DISEASE
     Route: 065
  9. CARBIDOPA/LEVODOPA [Suspect]
     Active Substance: CARBIDOPA\LEVODOPA
     Indication: OSMOTIC DEMYELINATION SYNDROME
     Dosage: 1 DOSAGE FORM, TID, 1 TABLET; THREE TIMES DAILY
     Route: 048
  10. PRAMIPEXOLE. [Suspect]
     Active Substance: PRAMIPEXOLE
     Dosage: 1.5 MILLIGRAM, QD, PRAMIPEXOLE WAS REINTRODUCED
     Route: 065
  11. PRAMIPEXOLE. [Suspect]
     Active Substance: PRAMIPEXOLE
     Indication: PARKINSONISM
     Dosage: 1 MILLIGRAM, THREE TIMES PER DAY
     Route: 065
  12. TRIHEXYPHENIDYL [Concomitant]
     Active Substance: TRIHEXYPHENIDYL
     Indication: PARKINSONISM
  13. CARBIDOPA/LEVODOPA [Suspect]
     Active Substance: CARBIDOPA\LEVODOPA
     Indication: PARKINSONISM
     Dosage: 1.5 DOSAGE FORM, TID, .5 TABLET; THREE TIMES DAILY
     Route: 048
  14. NEUPRO [Suspect]
     Active Substance: ROTIGOTINE
     Indication: PARKINSONISM
  15. VALPROIC ACID. [Concomitant]
     Active Substance: VALPROIC ACID
     Indication: COMPULSIVE SHOPPING
     Route: 065

REACTIONS (6)
  - Intentional overdose [Unknown]
  - Parkinsonism [Unknown]
  - Rebound effect [Unknown]
  - Drug ineffective [Unknown]
  - Dysarthria [Unknown]
  - Suicide attempt [Unknown]
